FAERS Safety Report 10229378 (Version 11)
Quarter: 2018Q2

REPORT INFORMATION
  Report Type: Report from Study
  Country: FI (occurrence: FI)
  Receive Date: 20140611
  Receipt Date: 20180524
  Transmission Date: 20180711
  Serious: Yes (Hospitalization, Disabling)
  Sender: FDA-Public Use
  Company Number: FI-ROCHE-1289264

PATIENT
  Age: 53 Year
  Sex: Female

DRUGS (45)
  1. TRASTUZUMAB. [Suspect]
     Active Substance: TRASTUZUMAB
     Indication: HER-2 POSITIVE BREAST CANCER
     Dosage: LOADING DOSE
     Route: 042
     Dates: start: 20130711, end: 20130711
  2. METFORMIN [Concomitant]
     Active Substance: METFORMIN HYDROCHLORIDE
     Route: 065
     Dates: start: 20130711, end: 20130912
  3. OPAMOX [Concomitant]
     Active Substance: OXAZEPAM
     Route: 065
     Dates: start: 20130611
  4. JANUVIA [Concomitant]
     Active Substance: SITAGLIPTIN PHOSPHATE
     Route: 065
     Dates: start: 201612, end: 20170104
  5. METOCLOPRAMIDE. [Concomitant]
     Active Substance: METOCLOPRAMIDE
     Route: 065
     Dates: start: 20131003
  6. KEFEXIN [Concomitant]
     Active Substance: CEPHALEXIN
     Route: 065
     Dates: start: 20140618, end: 20140624
  7. FURESIS [Concomitant]
     Active Substance: FUROSEMIDE
     Dosage: 20-40MG
     Route: 065
     Dates: start: 20130627
  8. NOVORAPID [Concomitant]
     Active Substance: INSULIN ASPART
     Route: 065
     Dates: start: 20130711, end: 20131101
  9. JARDIANCE [Concomitant]
     Active Substance: EMPAGLIFLOZIN
     Route: 065
     Dates: start: 20161017, end: 20161213
  10. TEMAZEPAM. [Concomitant]
     Active Substance: TEMAZEPAM
     Indication: INSOMNIA
     Route: 065
     Dates: start: 20130611, end: 20141201
  11. TEMAZEPAM. [Concomitant]
     Active Substance: TEMAZEPAM
     Route: 065
     Dates: start: 20140601, end: 20141201
  12. NOVORAPID [Concomitant]
     Active Substance: INSULIN ASPART
     Dosage: 5 UNITS
     Route: 065
     Dates: start: 20160823
  13. METFOREM [Concomitant]
     Active Substance: METFORMIN HYDROCHLORIDE
     Route: 065
     Dates: start: 20160921
  14. JARDIANCE [Concomitant]
     Active Substance: EMPAGLIFLOZIN
     Route: 065
     Dates: start: 20161214
  15. PERTUZUMAB. [Suspect]
     Active Substance: PERTUZUMAB
     Dosage: FOLLOWED BY THE MAINTAINANCE DOSE?ON 11/JUL/2013, LAST DOSE OF PERTUZUMAB PRIOR TO FIRST EPISODE OF
     Route: 042
     Dates: start: 20130801
  16. KALCIPOS-D [Concomitant]
     Active Substance: CALCIUM CARBONATE\CHOLECALCIFEROL
     Indication: HYPOCALCAEMIA
     Route: 065
     Dates: start: 20130912, end: 20140601
  17. HISTEC [Concomitant]
     Active Substance: CETIRIZINE HYDROCHLORIDE
     Route: 065
     Dates: start: 20150827, end: 20150827
  18. SOMAC [Concomitant]
     Active Substance: PANTOPRAZOLE SODIUM
     Route: 065
     Dates: start: 20150827, end: 20150827
  19. CLINDAMYCIN. [Concomitant]
     Active Substance: CLINDAMYCIN
     Indication: SKIN INFECTION
     Route: 048
  20. PANADOL (FINLAND) [Concomitant]
     Route: 048
     Dates: start: 20130711
  21. DEXAMETHASON [Concomitant]
     Active Substance: DEXAMETHASONE
     Dosage: 15 MG DURING 3 DAYS
     Route: 065
     Dates: start: 20130711, end: 20131027
  22. DALACIN [Concomitant]
     Active Substance: CLINDAMYCIN
     Dosage: 300MG X 2
     Route: 065
     Dates: start: 20160804, end: 20160810
  23. DIFLUCAN [Concomitant]
     Active Substance: FLUCONAZOLE
     Route: 065
     Dates: start: 20170322, end: 20170323
  24. TRASTUZUMAB. [Suspect]
     Active Substance: TRASTUZUMAB
     Dosage: FOLLOWED BY THE MAINTAINANCE DOSE.?ON 11/JUL/2013, LAST DOSE OF TRASTUZUMAB PRIOR TO FIRST EPISODE O
     Route: 042
     Dates: start: 20130801
  25. JANUVIA [Concomitant]
     Active Substance: SITAGLIPTIN PHOSPHATE
     Route: 065
     Dates: start: 20131003, end: 20151231
  26. ESOMEPRAZOLE [Concomitant]
     Active Substance: ESOMEPRAZOLE
     Route: 065
     Dates: start: 20131003
  27. ARTELAC EYE DROPS [Concomitant]
     Dosage: DROPS WHEN NEEDED
     Route: 065
     Dates: start: 201310, end: 20131127
  28. BEMETSON [Concomitant]
     Dosage: CEREME
     Route: 065
     Dates: start: 20141203, end: 20141216
  29. TRIMOPAN (FINLAND) [Concomitant]
     Dosage: 160 MG X 2
     Route: 065
     Dates: start: 20150603, end: 20150605
  30. LANTUS [Concomitant]
     Active Substance: INSULIN GLARGINE
     Route: 065
     Dates: start: 20151119, end: 20160506
  31. DOCETAXEL. [Suspect]
     Active Substance: DOCETAXEL
     Indication: HER-2 POSITIVE BREAST CANCER
     Dosage: ON 11/JUL/2013, LAST DOSE OF DOCETAXEL PRIOR TO FIRST EPISODE OF DIARRHEA?ON 01/AUG/2013, SHE RECEIV
     Route: 042
     Dates: start: 20130711, end: 20131025
  32. ESOMEPRAZOLE [Concomitant]
     Active Substance: ESOMEPRAZOLE
     Route: 065
     Dates: start: 20131003, end: 20140601
  33. PREDNISOLON [Concomitant]
     Active Substance: PREDNISOLONE
     Dosage: 10-40MG
     Route: 065
     Dates: start: 20130627, end: 20130720
  34. SPORANOX [Concomitant]
     Active Substance: ITRACONAZOLE
     Route: 065
     Dates: start: 20170326, end: 20170401
  35. XGEVA [Concomitant]
     Active Substance: DENOSUMAB
     Indication: PROPHYLAXIS
     Route: 065
     Dates: start: 20130913
  36. ATARAX [Concomitant]
     Active Substance: HYDROXYZINE HYDROCHLORIDE
     Dosage: HYDROCHLORIDE
     Route: 065
     Dates: start: 20130810, end: 20130810
  37. NEULASTA [Concomitant]
     Active Substance: PEGFILGRASTIM
     Route: 058
     Dates: start: 20130712, end: 20130801
  38. V-PEN [Concomitant]
     Dosage: 3 MILLION IU
     Route: 065
     Dates: start: 20170503, end: 20170509
  39. PERTUZUMAB. [Suspect]
     Active Substance: PERTUZUMAB
     Indication: HER-2 POSITIVE BREAST CANCER
     Dosage: LOADING DOSE
     Route: 042
     Dates: start: 20130711, end: 20130711
  40. OPAMOX [Concomitant]
     Active Substance: OXAZEPAM
     Indication: ANXIETY
     Route: 065
     Dates: start: 20130611
  41. LOPERAMIDE [Concomitant]
     Active Substance: LOPERAMIDE
     Route: 065
     Dates: start: 20130622
  42. GRANISETRON [Concomitant]
     Active Substance: GRANISETRON
     Route: 048
     Dates: start: 20130711
  43. LITALGIN [Concomitant]
     Active Substance: PITOFENONE
     Route: 065
     Dates: start: 20150827
  44. VICTOZA [Concomitant]
     Active Substance: LIRAGLUTIDE
     Route: 065
     Dates: start: 20151231
  45. VICTOZA [Concomitant]
     Active Substance: LIRAGLUTIDE
     Route: 065
     Dates: start: 20170104

REACTIONS (5)
  - Febrile neutropenia [Recovered/Resolved]
  - Abdominal pain upper [Recovered/Resolved]
  - Bronchitis [Recovered/Resolved]
  - Dyspnoea [Recovered/Resolved]
  - Diarrhoea [Recovered/Resolved]

NARRATIVE: CASE EVENT DATE: 20130716
